FAERS Safety Report 17895119 (Version 4)
Quarter: 2022Q1

REPORT INFORMATION
  Report Type: Spontaneous
  Country: US (occurrence: US)
  Receive Date: 20200615
  Receipt Date: 20220106
  Transmission Date: 20220423
  Serious: Yes (Hospitalization)
  Sender: FDA-Public Use
  Company Number: US-PFIZER INC-2020232132

PATIENT
  Age: 56 Year
  Sex: Female
  Weight: 89.81 kg

DRUGS (7)
  1. LYRICA [Suspect]
     Active Substance: PREGABALIN
     Indication: Neuropathy peripheral
     Dosage: UNK
     Dates: start: 2010
  2. LYRICA [Suspect]
     Active Substance: PREGABALIN
     Dosage: LOWER DOSE LIKE 50MG OR 75MG
  3. LYRICA [Suspect]
     Active Substance: PREGABALIN
     Dosage: LOWER THAN 100MG
  4. LYRICA [Suspect]
     Active Substance: PREGABALIN
     Dosage: 100 (UNIT UNSPECIFIED)
  5. LYRICA [Suspect]
     Active Substance: PREGABALIN
     Dosage: 125 MG (50MG AND 75MG)
  6. LYRICA [Suspect]
     Active Substance: PREGABALIN
     Dosage: 500 MG, DAILY (100MG IN THE MORNING, 200MG IN THE AFTERNOON AND 200MG AT BEDTIME)
  7. LYRICA [Suspect]
     Active Substance: PREGABALIN
     Dosage: 300 MG, 2X/DAY (300MG IN THE AFTERNOON AND 300MG AT BEDTIME)

REACTIONS (7)
  - Balance disorder [Unknown]
  - Fall [Unknown]
  - Upper limb fracture [Unknown]
  - Drug ineffective [Unknown]
  - Pain [Unknown]
  - Nervousness [Unknown]
  - Nasopharyngitis [Unknown]

NARRATIVE: CASE EVENT DATE: 20200801
